FAERS Safety Report 12833742 (Version 1)
Quarter: 2016Q4

REPORT INFORMATION
  Report Type: Spontaneous
  Country: US (occurrence: US)
  Receive Date: 20161010
  Receipt Date: 20161010
  Transmission Date: 20170207
  Serious: No
  Sender: FDA-Public Use
  Company Number: US-ASTRAZENECA-2016SF04373

PATIENT
  Sex: Female
  Weight: 90.7 kg

DRUGS (1)
  1. SYMBICORT [Suspect]
     Active Substance: BUDESONIDE\FORMOTEROL FUMARATE DIHYDRATE
     Indication: ASTHMA
     Dosage: 80/4.5 MCG 2 PUFFS ONCE A DAY
     Route: 055

REACTIONS (6)
  - Dysphagia [Unknown]
  - Throat irritation [Unknown]
  - Off label use [Unknown]
  - Oral pain [Unknown]
  - Coating in mouth [Unknown]
  - Intentional product misuse [Unknown]
